FAERS Safety Report 15702581 (Version 1)
Quarter: 2018Q4

REPORT INFORMATION
  Report Type: Report from Study
  Country: US (occurrence: US)
  Receive Date: 20181210
  Receipt Date: 20181210
  Transmission Date: 20190205
  Serious: No
  Sender: FDA-Public Use
  Company Number: US-KYOWAKIRIN-2018BKK001735

PATIENT

DRUGS (1)
  1. GRANISETRON [Suspect]
     Active Substance: GRANISETRON
     Indication: PROPHYLAXIS OF NAUSEA AND VOMITING
     Dosage: EVERY 7 DAYS
     Route: 062
     Dates: start: 201805

REACTIONS (3)
  - Application site irritation [Unknown]
  - Pain in extremity [Not Recovered/Not Resolved]
  - Application site pain [Unknown]

NARRATIVE: CASE EVENT DATE: 2018
